FAERS Safety Report 24664946 (Version 1)
Quarter: 2024Q4

REPORT INFORMATION
  Report Type: Report from Study
  Country: CA (occurrence: CA)
  Receive Date: 20241126
  Receipt Date: 20241126
  Transmission Date: 20250115
  Serious: Yes (Other)
  Sender: ABBVIE
  Company Number: CA-ABBVIE-6015194

PATIENT
  Age: 67 Year
  Sex: Female

DRUGS (1)
  1. RINVOQ [Suspect]
     Active Substance: UPADACITINIB
     Indication: Crohn^s disease
     Dosage: FORM STRENGTH: 15 MILLIGRAM?DOSE: 15 MG DAILY, LAST DOSE: 20 NOV 2024
     Route: 048
     Dates: start: 20240308

REACTIONS (1)
  - Intestinal operation [Recovering/Resolving]

NARRATIVE: CASE EVENT DATE: 20241029
